FAERS Safety Report 6120352-4 (Version None)
Quarter: 2009Q1

REPORT INFORMATION
  Report Type: 
  Country: None (occurrence: None)
  Receive Date: 20090312
  Receipt Date: 20090312
  Transmission Date: 20090719
  Serious: No
  Sender: FDA-Public Use
  Company Number: None

PATIENT
  Sex: Female

DRUGS (1)
  1. CLONAZEPAM [Suspect]
     Dosage: 2 MG 1 TID ORALLY
     Route: 048
     Dates: start: 20080101, end: 20090101

REACTIONS (1)
  - ANXIETY [None]
